FAERS Safety Report 6336271-4 (Version None)
Quarter: 2009Q3

REPORT INFORMATION
  Report Type: 
  Country: None (occurrence: None)
  Receive Date: 20090901
  Receipt Date: 20090826
  Transmission Date: 20100115
  Serious: Yes (Death, Hospitalization, Other)
  Sender: FDA-Public Use
  Company Number: PHBS2006BR05167

PATIENT
  Sex: Male
  Weight: 105.6 kg

DRUGS (18)
  1. ZOMETA [Suspect]
     Indication: BONE NEOPLASM MALIGNANT
     Dosage: 4 MG, QMO
     Route: 042
     Dates: start: 20060329
  2. ZOMETA [Suspect]
     Indication: PROSTATE CANCER
     Dosage: 4 MG, QMO
     Route: 042
     Dates: start: 20060401
  3. ZOMETA [Suspect]
     Dosage: 4 MG, QMO
     Route: 042
     Dates: start: 20060501
  4. DIOVAN HCT [Suspect]
     Indication: HYPERTENSION
     Dosage: 160/25 MG ONCE A DAY AFTER BREAKFAST
     Route: 048
     Dates: start: 20050101
  5. EXFORGE [Suspect]
     Dosage: UNK
     Route: 048
  6. ATENOLOL [Concomitant]
     Indication: ARRHYTHMIA
     Dosage: ONCE DAILY
     Route: 048
  7. ANDROCUR [Concomitant]
     Indication: PROSTATE CANCER
  8. METFORMIN HCL [Concomitant]
     Indication: DIABETES MELLITUS
     Route: 048
  9. SUSTRATE [Concomitant]
     Indication: DIABETES MELLITUS
  10. RANITIDINE [Concomitant]
  11. NATRILIX [Concomitant]
     Indication: HYPERTENSION
     Dosage: 1.5 MG
  12. CILOSTAZOL [Concomitant]
  13. BUFERIN [Concomitant]
  14. ROSUVASTATIN [Concomitant]
  15. GLIMEPIRIDE [Concomitant]
     Indication: DIABETES MELLITUS
  16. GLUCOBAY [Concomitant]
     Indication: DIABETES MELLITUS
     Dosage: 50
  17. ANCORON [Concomitant]
     Indication: CARDIAC DISORDER
     Dosage: 200
  18. SIMVASTATIN [Concomitant]
     Indication: BLOOD CHOLESTEROL INCREASED
     Route: 048

REACTIONS (20)
  - APATHY [None]
  - ASTHENIA [None]
  - BACK PAIN [None]
  - BONE DENSITY DECREASED [None]
  - CARDIAC ARREST [None]
  - DECREASED APPETITE [None]
  - ESCHAR [None]
  - FEELING HOT [None]
  - INFARCTION [None]
  - INFLUENZA [None]
  - MULTI-ORGAN FAILURE [None]
  - PAIN [None]
  - PAIN IN EXTREMITY [None]
  - PARALYSIS [None]
  - PNEUMONIA [None]
  - PYREXIA [None]
  - RENAL INFARCT [None]
  - RESPIRATORY ARREST [None]
  - RETCHING [None]
  - RHABDOMYOLYSIS [None]
